FAERS Safety Report 23411728 (Version 1)
Quarter: 2024Q1

REPORT INFORMATION
  Report Type: Spontaneous
  Country: US (occurrence: US)
  Receive Date: 20240117
  Receipt Date: 20240117
  Transmission Date: 20240410
  Serious: Yes (Hospitalization, Other)
  Sender: FDA-Public Use
  Company Number: US-MLMSERVICE-20231226-4745935-1

PATIENT
  Age: 74 Year
  Sex: Female

DRUGS (5)
  1. LIDOCAINE HYDROCHLORIDE [Suspect]
     Active Substance: LIDOCAINE HYDROCHLORIDE
     Indication: Back pain
     Dosage: 2 MILLILITER
     Route: 008
  2. SALINE [Suspect]
     Active Substance: SODIUM CHLORIDE
     Indication: Back pain
     Dosage: 2 MILLILITER
     Route: 008
  3. DEPO-MEDROL [Suspect]
     Active Substance: METHYLPREDNISOLONE ACETATE
     Indication: Back pain
     Dosage: 80 MILLIGRAM
     Route: 008
  4. IOHEXOL [Suspect]
     Active Substance: IOHEXOL
     Indication: Epidural injection
     Route: 008
  5. LISINOPRIL [Concomitant]
     Active Substance: LISINOPRIL
     Indication: Hypertension
     Dosage: 20 MILLIGRAM, QD

REACTIONS (3)
  - Meningitis aseptic [Recovered/Resolved]
  - Product administration error [Recovered/Resolved]
  - Meningitis chemical [Recovered/Resolved]
